FAERS Safety Report 6788020-3 (Version None)
Quarter: 2010Q2

REPORT INFORMATION
  Report Type: 
  Country: None (occurrence: None)
  Receive Date: 20100623
  Receipt Date: 20080111
  Transmission Date: 20101027
  Serious: No
  Sender: FDA-Public Use
  Company Number: US-PFIZER INC-2007105379

PATIENT
  Sex: Female
  Weight: 58.06 kg

DRUGS (3)
  1. DEPO-PROVERA SUSPENSION/INJ [Suspect]
     Indication: CONTRACEPTION
     Dosage: 150MG/ML
     Route: 030
     Dates: start: 20011004, end: 20070801
  2. DEPO-PROVERA SUSPENSION/INJ [Suspect]
     Dosage: 104MG/0.65ML
     Dates: start: 20071212
  3. CALCIUM CARBONATE [Concomitant]

REACTIONS (2)
  - BACK PAIN [None]
  - VAGINAL HAEMORRHAGE [None]
